FAERS Safety Report 5844547-X (Version None)
Quarter: 2008Q3

REPORT INFORMATION
  Report Type: 
  Country: None (occurrence: None)
  Receive Date: 20080814
  Receipt Date: 20080811
  Transmission Date: 20090109
  Serious: Yes (Hospitalization)
  Sender: FDA-Public Use
  Company Number: PHHO2004US15547

PATIENT
  Sex: Female
  Weight: 185 kg

DRUGS (9)
  1. EXELON EXELON+CAP [Suspect]
     Indication: DEMENTIA ALZHEIMER'S TYPE
     Dosage: DOSE LEVEL 1 - 3MG/DAY
     Dates: start: 20041006
  2. EXELON EXELON+CAP [Suspect]
     Dosage: DOSE LEVEL 3 - 9 MG/DAY
     Dates: end: 20041223
  3. EFFEXOR XR [Concomitant]
     Indication: DEPRESSION
  4. PLAVIX [Concomitant]
  5. PRILOSEC [Concomitant]
     Indication: GASTROOESOPHAGEAL REFLUX DISEASE
  6. PROVIGIL [Concomitant]
     Indication: DEPRESSION
  7. PREVACID [Concomitant]
     Indication: GASTROOESOPHAGEAL REFLUX DISEASE
  8. CENTRUM SILVER [Concomitant]
  9. VITAMIN E [Concomitant]
     Indication: DEMENTIA ALZHEIMER'S TYPE

REACTIONS (10)
  - AFFECTIVE DISORDER [None]
  - AGITATION [None]
  - ANXIETY DISORDER DUE TO A GENERAL MEDICAL CONDITION [None]
  - CONFUSIONAL STATE [None]
  - DEMENTIA [None]
  - DEPRESSION [None]
  - DISEASE PROGRESSION [None]
  - ENCEPHALOPATHY [None]
  - MENTAL STATUS CHANGES [None]
  - URINARY TRACT INFECTION [None]
